FAERS Safety Report 9396225 (Version 1)
Quarter: 2013Q3

REPORT INFORMATION
  Report Type: Spontaneous
  Country: DE (occurrence: DE)
  Receive Date: 20130711
  Receipt Date: 20130711
  Transmission Date: 20140515
  Serious: Yes (Other)
  Sender: FDA-Public Use
  Company Number: DE-BAXTER-2013BAX026044

PATIENT
  Age: 37 Year
  Sex: Female

DRUGS (5)
  1. CERNEVIT [Suspect]
     Indication: PARENTERAL NUTRITION
     Route: 042
     Dates: start: 20130501, end: 20130501
  2. ADDEL N [Suspect]
     Indication: PARENTERAL NUTRITION
     Route: 042
     Dates: start: 20130501, end: 20130501
  3. NATRIUMCHLORID BAXTER [Suspect]
     Indication: PARENTERAL NUTRITION
     Route: 042
     Dates: start: 20130501, end: 20130501
  4. MORPHINE [Suspect]
     Indication: PITUITARY TUMOUR BENIGN
     Route: 065
  5. MAGNEROT [Suspect]
     Indication: PRODUCT USED FOR UNKNOWN INDICATION
     Route: 042
     Dates: start: 20130501, end: 20130501

REACTIONS (3)
  - Coma [Recovered/Resolved]
  - Somnolence [Recovered/Resolved]
  - Fatigue [Recovered/Resolved]
